FAERS Safety Report 18981638 (Version 1)
Quarter: 2021Q1

REPORT INFORMATION
  Report Type: Spontaneous
  Country: US (occurrence: US)
  Receive Date: 20210308
  Receipt Date: 20210308
  Transmission Date: 20210420
  Serious: No
  Sender: FDA-Public Use
  Company Number: US-GILEAD-2021-0519772

PATIENT
  Sex: Male

DRUGS (2)
  1. VEKLURY [Suspect]
     Active Substance: REMDESIVIR
     Indication: SARS-COV-2 TEST POSITIVE
     Dosage: UNK
     Route: 042
  2. PLASMA [Concomitant]
     Active Substance: HUMAN PLASMA
     Indication: COVID-19

REACTIONS (1)
  - General physical health deterioration [Unknown]
